FAERS Safety Report 11095912 (Version 1)
Quarter: 2015Q2

REPORT INFORMATION
  Report Type: Spontaneous
  Country: US (occurrence: US)
  Receive Date: 20150507
  Receipt Date: 20150507
  Transmission Date: 20150821
  Serious: Yes (Other)
  Sender: FDA-Public Use
  Company Number: US-BEH-2013037565

PATIENT
  Age: 72 Year
  Sex: Male

DRUGS (1)
  1. IVIG [Suspect]
     Active Substance: HUMAN IMMUNOGLOBULIN G
     Indication: SHOSHIN BERIBERI

REACTIONS (6)
  - Lactic acidosis [Unknown]
  - Encephalopathy [Unknown]
  - Extraocular muscle paresis [Unknown]
  - Hypotension [Unknown]
  - Respiratory failure [Unknown]
  - Drug ineffective for unapproved indication [Unknown]
